FAERS Safety Report 13409556 (Version 2)
Quarter: 2017Q4

REPORT INFORMATION
  Report Type: Spontaneous
  Country: US (occurrence: US)
  Receive Date: 20170406
  Receipt Date: 20171103
  Transmission Date: 20180320
  Serious: Yes (Other)
  Sender: FDA-Public Use
  Company Number: US-JNJFOC-20161009609

PATIENT
  Age: 11 Year
  Sex: Male

DRUGS (15)
  1. RISPERDAL [Suspect]
     Active Substance: RISPERIDONE
     Indication: BIPOLAR DISORDER
     Route: 065
     Dates: end: 20071030
  2. RISPERDAL [Suspect]
     Active Substance: RISPERIDONE
     Indication: BIPOLAR DISORDER
     Route: 065
     Dates: start: 20061113, end: 20070904
  3. FOCALIN [Concomitant]
     Active Substance: DEXMETHYLPHENIDATE HYDROCHLORIDE
     Route: 065
  4. RISPERDAL [Suspect]
     Active Substance: RISPERIDONE
     Indication: BIPOLAR DISORDER
     Route: 065
     Dates: end: 20061010
  5. RISPERDAL [Suspect]
     Active Substance: RISPERIDONE
     Indication: LEARNING DISORDER
     Route: 065
     Dates: end: 20071030
  6. RISPERDAL [Suspect]
     Active Substance: RISPERIDONE
     Indication: LEARNING DISORDER
     Route: 065
     Dates: end: 2007
  7. RISPERDAL [Suspect]
     Active Substance: RISPERIDONE
     Indication: ATTENTION DEFICIT/HYPERACTIVITY DISORDER
     Route: 065
     Dates: end: 20071030
  8. RISPERDAL [Suspect]
     Active Substance: RISPERIDONE
     Indication: ATTENTION DEFICIT/HYPERACTIVITY DISORDER
     Route: 065
     Dates: end: 2007
  9. RISPERDAL [Suspect]
     Active Substance: RISPERIDONE
     Indication: BIPOLAR DISORDER
     Route: 065
     Dates: end: 2007
  10. DEPAKOTE [Concomitant]
     Active Substance: DIVALPROEX SODIUM
     Route: 065
  11. RISPERDAL [Suspect]
     Active Substance: RISPERIDONE
     Indication: LEARNING DISORDER
     Route: 065
     Dates: start: 20061113, end: 20070904
  12. RISPERDAL [Suspect]
     Active Substance: RISPERIDONE
     Indication: ATTENTION DEFICIT/HYPERACTIVITY DISORDER
     Route: 065
     Dates: start: 20061113, end: 20070904
  13. RISPERDAL [Suspect]
     Active Substance: RISPERIDONE
     Indication: LEARNING DISORDER
     Route: 065
     Dates: end: 20061010
  14. RISPERDAL [Suspect]
     Active Substance: RISPERIDONE
     Indication: PRODUCT USED FOR UNKNOWN INDICATION
     Route: 048
     Dates: start: 20061113, end: 20071030
  15. RISPERDAL [Suspect]
     Active Substance: RISPERIDONE
     Indication: ATTENTION DEFICIT/HYPERACTIVITY DISORDER
     Route: 065
     Dates: end: 20061010

REACTIONS (4)
  - Emotional disorder [Unknown]
  - Obesity [Unknown]
  - Dyskinesia [Unknown]
  - Gynaecomastia [Unknown]

NARRATIVE: CASE EVENT DATE: 20071030
